FAERS Safety Report 23800447 (Version 1)
Quarter: 2024Q2

REPORT INFORMATION
  Report Type: Spontaneous
  Country: SE (occurrence: SE)
  Receive Date: 20240430
  Receipt Date: 20240430
  Transmission Date: 20240716
  Serious: Yes (Hospitalization)
  Sender: FDA-Public Use
  Company Number: None

PATIENT
  Age: 74 Year
  Sex: Female

DRUGS (1)
  1. SERTRALINE HYDROCHLORIDE [Suspect]
     Active Substance: SERTRALINE HYDROCHLORIDE
     Indication: Depressed mood
     Dosage: 0.5 TABLET DAILY FOR 2 WEEKS, THEN 1 TABLET DAILY
     Route: 065
     Dates: start: 20231027

REACTIONS (3)
  - Erythema [Recovering/Resolving]
  - Ischaemic stroke [Recovered/Resolved]
  - Skin discolouration [Recovering/Resolving]

NARRATIVE: CASE EVENT DATE: 20240120
